FAERS Safety Report 4742199-3 (Version None)
Quarter: 2005Q3

REPORT INFORMATION
  Report Type: 
  Country: None (occurrence: None)
  Receive Date: 20050811
  Receipt Date: 20050316
  Transmission Date: 20060218
  Serious: No
  Sender: FDA-Public Use
  Company Number: US-GLAXOSMITHKLINE-A0550082A

PATIENT
  Age: 52 Year
  Sex: Female

DRUGS (7)
  1. PAXIL CR [Suspect]
     Indication: DEPRESSION
     Dosage: 2TAB PER DAY
     Route: 048
  2. NEURONTIN [Concomitant]
  3. HYOSCYAMINE [Concomitant]
  4. AMITRIPTYLINE [Concomitant]
  5. VITAMINS [Concomitant]
  6. FOLTX [Concomitant]
     Route: 065
  7. VITAMIN B COMPLEX CAP [Concomitant]
     Route: 065

REACTIONS (3)
  - DRUG INEFFECTIVE [None]
  - INSOMNIA [None]
  - NIGHT SWEATS [None]
